FAERS Safety Report 12005696 (Version 6)
Quarter: 2025Q1

REPORT INFORMATION
  Report Type: Spontaneous
  Country: FR (occurrence: FR)
  Receive Date: 20160205
  Receipt Date: 20250108
  Transmission Date: 20250409
  Serious: Yes (Life-Threatening, Hospitalization, Other)
  Sender: ALEXION PHARMACEUTICALS
  Company Number: FR-ALEXION PHARMACEUTICALS INC-A201504158

PATIENT
  Age: 35 Year
  Weight: 74 kg

DRUGS (36)
  1. SOLIRIS [Interacting]
     Active Substance: ECULIZUMAB
     Indication: Paroxysmal nocturnal haemoglobinuria
  2. SOLIRIS [Interacting]
     Active Substance: ECULIZUMAB
     Route: 042
  3. SOLIRIS [Interacting]
     Active Substance: ECULIZUMAB
  4. SOLIRIS [Interacting]
     Active Substance: ECULIZUMAB
     Route: 042
  5. SOLIRIS [Interacting]
     Active Substance: ECULIZUMAB
  6. SOLIRIS [Interacting]
     Active Substance: ECULIZUMAB
     Route: 042
  7. SOLIRIS [Interacting]
     Active Substance: ECULIZUMAB
  8. SOLIRIS [Interacting]
     Active Substance: ECULIZUMAB
     Route: 042
  9. MENVEO [Interacting]
     Active Substance: NEISSERIA MENINGITIDIS GROUP A CAPSULAR OLIGOSACCHARIDE DIPHTHERIA CRM197 PROTEIN CONJUGATE ANTIGEN\
     Indication: Immunisation
  10. MENVEO [Interacting]
     Active Substance: NEISSERIA MENINGITIDIS GROUP A CAPSULAR OLIGOSACCHARIDE DIPHTHERIA CRM197 PROTEIN CONJUGATE ANTIGEN\
     Indication: Prophylaxis
     Route: 030
  11. MENVEO [Interacting]
     Active Substance: NEISSERIA MENINGITIDIS GROUP A CAPSULAR OLIGOSACCHARIDE DIPHTHERIA CRM197 PROTEIN CONJUGATE ANTIGEN\
  12. MENVEO [Interacting]
     Active Substance: NEISSERIA MENINGITIDIS GROUP A CAPSULAR OLIGOSACCHARIDE DIPHTHERIA CRM197 PROTEIN CONJUGATE ANTIGEN\
     Route: 030
  13. Oracillin [Concomitant]
     Indication: Antibiotic prophylaxis
     Route: 065
  14. Oracillin [Concomitant]
     Route: 065
  15. DEPAKOTE [Concomitant]
     Active Substance: DIVALPROEX SODIUM
     Indication: Bipolar I disorder
     Route: 065
  16. DEPAKOTE [Concomitant]
     Active Substance: DIVALPROEX SODIUM
     Route: 065
  17. VENLAFAXINE [Concomitant]
     Active Substance: VENLAFAXINE HYDROCHLORIDE
     Indication: Bipolar I disorder
     Route: 065
  18. VENLAFAXINE [Concomitant]
     Active Substance: VENLAFAXINE HYDROCHLORIDE
     Route: 065
  19. NOREPINEPHRINE BITARTRATE [Concomitant]
     Active Substance: NOREPINEPHRINE BITARTRATE
     Indication: Respiratory disorder
     Route: 065
  20. NOREPINEPHRINE BITARTRATE [Concomitant]
     Active Substance: NOREPINEPHRINE BITARTRATE
     Route: 065
  21. PIPERACILLIN SODIUM\TAZOBACTAM SODIUM [Concomitant]
     Active Substance: PIPERACILLIN SODIUM\TAZOBACTAM SODIUM
     Indication: Antibiotic therapy
     Route: 065
  22. PIPERACILLIN SODIUM\TAZOBACTAM SODIUM [Concomitant]
     Active Substance: PIPERACILLIN SODIUM\TAZOBACTAM SODIUM
     Route: 065
  23. OXAZEPAM [Concomitant]
     Active Substance: OXAZEPAM
     Route: 065
  24. OXAZEPAM [Concomitant]
     Active Substance: OXAZEPAM
     Route: 065
  25. CLINDAMYCIN [Concomitant]
     Active Substance: CLINDAMYCIN
     Indication: Antibiotic therapy
     Route: 065
  26. CLINDAMYCIN [Concomitant]
     Active Substance: CLINDAMYCIN
     Route: 065
  27. CEFTRIAXONE [Concomitant]
     Active Substance: CEFTRIAXONE
     Indication: Meningococcal sepsis
     Route: 065
  28. CEFTRIAXONE [Concomitant]
     Active Substance: CEFTRIAXONE
     Indication: Septic shock
     Route: 065
  29. CEFTRIAXONE [Concomitant]
     Active Substance: CEFTRIAXONE
     Dosage: 4 G, QD
     Route: 065
  30. CEFTRIAXONE [Concomitant]
     Active Substance: CEFTRIAXONE
     Dosage: 4 G, QD
     Route: 065
  31. CEFTRIAXONE SODIUM [Concomitant]
     Active Substance: CEFTRIAXONE SODIUM
     Indication: Septic shock
     Route: 042
  32. CEFTRIAXONE SODIUM [Concomitant]
     Active Substance: CEFTRIAXONE SODIUM
  33. GENTAMICIN [Concomitant]
     Active Substance: GENTAMICIN
     Indication: Septic shock
     Route: 065
  34. GENTAMICIN [Concomitant]
     Active Substance: GENTAMICIN
     Route: 065
  35. CALCIUM CHLORIDE\MAGNESIUM CHLORIDE\MALIC ACID\POTASSIUM CHLORIDE\SODI [Concomitant]
     Active Substance: CALCIUM CHLORIDE\MAGNESIUM CHLORIDE\MALIC ACID\POTASSIUM CHLORIDE\SODIUM ACETATE\SODIUM CHLORIDE
     Route: 065
  36. CALCIUM CHLORIDE\MAGNESIUM CHLORIDE\MALIC ACID\POTASSIUM CHLORIDE\SODI [Concomitant]
     Active Substance: CALCIUM CHLORIDE\MAGNESIUM CHLORIDE\MALIC ACID\POTASSIUM CHLORIDE\SODIUM ACETATE\SODIUM CHLORIDE
     Route: 065

REACTIONS (14)
  - Meningococcal sepsis [Recovered/Resolved]
  - Septic shock [Recovered/Resolved]
  - Myelosuppression [Unknown]
  - Acute kidney injury [Recovering/Resolving]
  - Haemolytic anaemia [Unknown]
  - Hepatitis [Recovering/Resolving]
  - Cholestasis [Unknown]
  - Haemodynamic instability [Recovered/Resolved]
  - Angiopathy [Unknown]
  - Pleural effusion [Unknown]
  - Vaccination failure [Unknown]
  - Haemolysis [Unknown]
  - Drug interaction [Unknown]
  - Drug ineffective [Recovered/Resolved]
